FAERS Safety Report 9033706 (Version 1)
Quarter: 2013Q1

REPORT INFORMATION
  Report Type: Spontaneous
  Country: US (occurrence: US)
  Receive Date: 20130128
  Receipt Date: 20130128
  Transmission Date: 20140127
  Serious: Yes (Other)
  Sender: FDA-Public Use
  Company Number: US-AMGEN-USASP2012061802

PATIENT
  Age: 65 Year
  Sex: Female

DRUGS (1)
  1. ENBREL [Suspect]
     Indication: PRODUCT USED FOR UNKNOWN INDICATION
     Dosage: 50 MG, QWK
     Route: 058
     Dates: start: 20070912

REACTIONS (6)
  - Thyroid neoplasm [Unknown]
  - Vaginal operation [Unknown]
  - Urinary tract operation [Unknown]
  - Surgery [Unknown]
  - Scar [Unknown]
  - Nail pitting [Unknown]
